FAERS Safety Report 4627144-3 (Version None)
Quarter: 2005Q2

REPORT INFORMATION
  Report Type: 
  Country: None (occurrence: None)
  Receive Date: 20050405
  Receipt Date: 20041210
  Transmission Date: 20051028
  Serious: Yes (Hospitalization)
  Sender: FDA-Public Use
  Company Number: JP-GLAXOSMITHKLINE-B0361798A

PATIENT
  Age: 75 Year
  Sex: Male
  Weight: 52 kg

DRUGS (3)
  1. VALTREX [Suspect]
     Indication: HERPES ZOSTER
     Dosage: 1000MG THREE TIMES PER DAY
     Route: 048
     Dates: start: 20041102, end: 20041109
  2. LOXONIN [Suspect]
     Indication: PAIN
     Dosage: 60MG TWICE PER DAY
     Route: 048
     Dates: start: 20041104, end: 20041208
  3. TRYPTANOL [Concomitant]
     Dosage: 10MG PER DAY
     Route: 048
     Dates: start: 20041115, end: 20041207

REACTIONS (8)
  - ALANINE AMINOTRANSFERASE INCREASED [None]
  - ASPARTATE AMINOTRANSFERASE INCREASED [None]
  - BILIRUBIN CONJUGATED INCREASED [None]
  - BLOOD ALKALINE PHOSPHATASE INCREASED [None]
  - BLOOD BILIRUBIN INCREASED [None]
  - BLOOD LACTATE DEHYDROGENASE INCREASED [None]
  - GAMMA-GLUTAMYLTRANSFERASE INCREASED [None]
  - JAUNDICE [None]
